FAERS Safety Report 5455478-1 (Version None)
Quarter: 2007Q3

REPORT INFORMATION
  Report Type: 
  Country: None (occurrence: None)
  Receive Date: 20070918
  Receipt Date: 20070228
  Transmission Date: 20080115
  Serious: Yes (Hospitalization)
  Sender: FDA-Public Use
  Company Number: US-ASTRAZENECA-2006UW21338

PATIENT
  Age: 11923 Day
  Sex: Male
  Weight: 75 kg

DRUGS (2)
  1. SEROQUEL [Suspect]
     Indication: SLEEP DISORDER
     Dosage: 25-600 MG
     Route: 048
     Dates: start: 20030427, end: 20060411
  2. SEROQUEL [Suspect]
     Indication: BIPOLAR DISORDER
     Dosage: 25-600 MG
     Route: 048
     Dates: start: 20030427, end: 20060411

REACTIONS (1)
  - PANCREATITIS [None]
